FAERS Safety Report 6585378-5 (Version None)
Quarter: 2010Q1

REPORT INFORMATION
  Report Type: 
  Country: None (occurrence: None)
  Receive Date: 20100216
  Receipt Date: 20100216
  Transmission Date: 20100710
  Serious: Yes (Hospitalization)
  Sender: FDA-Public Use
  Company Number: None

PATIENT
  Sex: Female
  Weight: 69.4 kg

DRUGS (2)
  1. CYTARABINE [Suspect]
     Dosage: 32400 MG
  2. L-ASPARAGINASE [Suspect]
     Dosage: 21200 UNIT

REACTIONS (12)
  - ACUTE RESPIRATORY DISTRESS SYNDROME [None]
  - CANDIDIASIS [None]
  - CARDIAC ARREST [None]
  - CARDIOVASCULAR DISORDER [None]
  - CONGESTIVE CARDIOMYOPATHY [None]
  - EJECTION FRACTION DECREASED [None]
  - MULTI-ORGAN FAILURE [None]
  - NEUTROPENIA [None]
  - PULMONARY OEDEMA [None]
  - RENAL FAILURE [None]
  - RESPIRATORY FAILURE [None]
  - SEPSIS [None]
